FAERS Safety Report 8287722-X (Version None)
Quarter: 2012Q2

REPORT INFORMATION
  Report Type: 
  Country: None (occurrence: None)
  Receive Date: 20120411
  Receipt Date: 20120326
  Transmission Date: 20120825
  Serious: Yes (Death, Other)
  Sender: FDA-Public Use
  Company Number: FK201200972

PATIENT
  Age: 72 Year
  Sex: Female

DRUGS (3)
  1. ASPIRIN [Concomitant]
  2. BISOPROLOL FUMARATE [Concomitant]
  3. DEXAMETHASONE SODIUM PHOSPHATE [Suspect]
     Indication: LYMPHOMA
     Dosage: 32 MG/DAY

REACTIONS (11)
  - HAEMATOMA [None]
  - EXCORIATION [None]
  - PSEUDOMONAS TEST POSITIVE [None]
  - SEPSIS [None]
  - ANTIBIOTIC RESISTANT STAPHYLOCOCCUS TEST POSITIVE [None]
  - BLOOD CULTURE POSITIVE [None]
  - CARDIAC VALVE VEGETATION [None]
  - MULTI-ORGAN FAILURE [None]
  - CULTURE WOUND POSITIVE [None]
  - ERYSIPELAS [None]
  - AORTIC VALVE DISEASE [None]
